FAERS Safety Report 7998308-6 (Version None)
Quarter: 2011Q4

REPORT INFORMATION
  Report Type: 
  Country: None (occurrence: None)
  Receive Date: 20111221
  Receipt Date: 20110629
  Transmission Date: 20120403
  Serious: No
  Sender: FDA-Public Use
  Company Number: US-GLAXOSMITHKLINE-A0933880A

PATIENT
  Age: 65 Year
  Sex: Female

DRUGS (8)
  1. FENOFIBRATE [Suspect]
  2. GLIPIZIDE [Concomitant]
  3. LANTUS [Concomitant]
  4. LOVAZA [Suspect]
     Indication: BLOOD TRIGLYCERIDES INCREASED
     Dosage: 2CAP TWICE PER DAY
     Route: 048
     Dates: start: 20110401, end: 20110628
  5. DIOVAN [Concomitant]
  6. DILTIAZEM HCL [Concomitant]
  7. METFORMIN HCL [Concomitant]
  8. SIMVASTATIN [Concomitant]

REACTIONS (13)
  - FATIGUE [None]
  - ERUCTATION [None]
  - HEADACHE [None]
  - CONFUSIONAL STATE [None]
  - TREMOR [None]
  - DIZZINESS [None]
  - HEART RATE IRREGULAR [None]
  - DYSGEUSIA [None]
  - PALPITATIONS [None]
  - SLUGGISHNESS [None]
  - ASTHENIA [None]
  - HEART RATE INCREASED [None]
  - DYSPNOEA [None]
